FAERS Safety Report 21395665 (Version 1)
Quarter: 2022Q3

REPORT INFORMATION
  Report Type: Spontaneous
  Country: US (occurrence: US)
  Receive Date: 20220930
  Receipt Date: 20220930
  Transmission Date: 20221027
  Serious: No
  Sender: FDA-Public Use
  Company Number: US-JNJFOC-20220957951

PATIENT
  Sex: Female
  Weight: 54.5 kg

DRUGS (2)
  1. OPSUMIT [Suspect]
     Active Substance: MACITENTAN
     Indication: Product used for unknown indication
     Route: 048
  2. VELETRI [Suspect]
     Active Substance: EPOPROSTENOL
     Indication: Pulmonary arterial hypertension
     Dosage: VELETRI 1.5MG VIAL INTRAVENOUS CONTINUOUS
     Route: 042

REACTIONS (1)
  - Ear infection [Recovered/Resolved]
